FAERS Safety Report 9705974 (Version 2)
Quarter: 2013Q4

REPORT INFORMATION
  Report Type: Spontaneous
  Country: IT (occurrence: IT)
  Receive Date: 20131122
  Receipt Date: 20131217
  Transmission Date: 20140711
  Serious: Yes (Other)
  Sender: FDA-Public Use
  Company Number: IT-GLAXOSMITHKLINE-B0947186A

PATIENT
  Age: 78 Year
  Sex: Male
  Weight: 68 kg

DRUGS (6)
  1. ALKERAN [Suspect]
     Indication: PLASMA CELL MYELOMA
     Dosage: 12MG CYCLIC
     Route: 042
     Dates: start: 20130604, end: 20130923
  2. VELCADE [Suspect]
     Indication: PLASMA CELL MYELOMA
     Dosage: 3.5MG CYCLIC
     Route: 058
     Dates: start: 20130604, end: 20130923
  3. AMLODIPINE BESILATE [Concomitant]
     Indication: HYPERTENSION
     Route: 065
     Dates: start: 20130101
  4. SOLDESAM [Concomitant]
     Indication: PLASMA CELL MYELOMA
     Route: 048
     Dates: start: 20130101, end: 20130923
  5. CARDIOASPIRIN [Concomitant]
     Indication: THROMBOSIS PROPHYLAXIS
     Route: 065
     Dates: start: 20130101, end: 20130923
  6. METFORMIN [Concomitant]
     Indication: DIABETES MELLITUS
     Route: 065

REACTIONS (3)
  - Anaemia [Recovering/Resolving]
  - Constipation [Recovered/Resolved]
  - Neutropenia [Recovered/Resolved]
